FAERS Safety Report 9454471 (Version 2)
Quarter: 2013Q3

REPORT INFORMATION
  Report Type: Report from Study
  Country: US (occurrence: US)
  Receive Date: 20130812
  Receipt Date: 20130911
  Transmission Date: 20140515
  Serious: Yes (Other)
  Sender: FDA-Public Use
  Company Number: US-ROCHE-1259866

PATIENT
  Sex: 0

DRUGS (2)
  1. AVASTIN [Suspect]
     Indication: MACULAR DEGENERATION
     Route: 065
  2. AVASTIN [Suspect]
     Indication: OFF LABEL USE

REACTIONS (2)
  - Endophthalmitis [Unknown]
  - Rash [Unknown]
